FAERS Safety Report 20351570 (Version 1)
Quarter: 2022Q1

REPORT INFORMATION
  Report Type: Spontaneous
  Country: GB (occurrence: GB)
  Receive Date: 20220119
  Receipt Date: 20220119
  Transmission Date: 20220423
  Serious: Yes (Other)
  Sender: FDA-Public Use
  Company Number: GB-BROWN ^||CHR(38)||^ BURK(UK) LIMITED-ML2021-02219

PATIENT
  Sex: Female

DRUGS (1)
  1. CLINDAMYCIN HYDROCHLORIDE [Suspect]
     Active Substance: CLINDAMYCIN HYDROCHLORIDE
     Dosage: IN TOTAL
     Route: 048

REACTIONS (5)
  - Oesophageal candidiasis [Unknown]
  - Throat irritation [Unknown]
  - Oesophageal pain [Unknown]
  - Dysphagia [Unknown]
  - Odynophagia [Unknown]
